FAERS Safety Report 10940246 (Version 2)
Quarter: 2015Q2

REPORT INFORMATION
  Report Type: Spontaneous
  Country: US (occurrence: US)
  Receive Date: 20150322
  Receipt Date: 20150525
  Transmission Date: 20150821
  Serious: No
  Sender: FDA-Public Use
  Company Number: US-JNJFOC-20140215118

PATIENT
  Age: 50 Year
  Sex: Male
  Weight: 72.58 kg

DRUGS (1)
  1. NUCYNTA ER [Suspect]
     Active Substance: TAPENTADOL HYDROCHLORIDE
     Indication: PAIN
     Dosage: TWICE A DAY
     Route: 048
     Dates: start: 20140221

REACTIONS (4)
  - Pain [Unknown]
  - Breakthrough pain [Not Recovered/Not Resolved]
  - Drug ineffective [Unknown]
  - Poor quality sleep [Unknown]

NARRATIVE: CASE EVENT DATE: 20140221
